FAERS Safety Report 5246144-6 (Version None)
Quarter: 2007Q1

REPORT INFORMATION
  Report Type: 
  Country: None (occurrence: None)
  Receive Date: 20070220
  Receipt Date: 20070202
  Transmission Date: 20070707
  Serious: Yes (Life-Threatening, Hospitalization, Other)
  Sender: FDA-Public Use
  Company Number: 310001L07FRA

PATIENT
  Age: 27 Year
  Sex: Female

DRUGS (3)
  1. FOLLITROPIN ALPHA (FOLLITROPIN ALFA) [Suspect]
     Dosage: 75 IU
  2. CHORIONIC GONADOTROPIN (CHORIONIC GONADOTROPHIN) [Suspect]
     Indication: ASSISTED FERTILISATION
     Dosage: 5000 IU
  3. CETRORELIX ACETATE (CETRORELIX ACETATE) [Suspect]
     Indication: ASSISTED FERTILISATION
     Dosage: 3 MG, ONCE

REACTIONS (9)
  - ABORTION SPONTANEOUS [None]
  - ACUTE RESPIRATORY FAILURE [None]
  - ASCITES [None]
  - BLOOD PRESSURE SYSTOLIC INSPIRATORY DECREASED [None]
  - CARDIAC TAMPONADE [None]
  - DRUG EXPOSURE BEFORE PREGNANCY [None]
  - OVARIAN HYPERSTIMULATION SYNDROME [None]
  - PERICARDIAL EFFUSION [None]
  - PLEURAL EFFUSION [None]
